FAERS Safety Report 5713752-5 (Version None)
Quarter: 2008Q2

REPORT INFORMATION
  Report Type: 
  Country: None (occurrence: None)
  Receive Date: 20080421
  Receipt Date: 20080409
  Transmission Date: 20081010
  Serious: Yes (Other)
  Sender: FDA-Public Use
  Company Number: 2005BI021007

PATIENT
  Age: 49 Year
  Sex: Male

DRUGS (1)
  1. AVONEX [Suspect]
     Indication: MULTIPLE SCLEROSIS
     Dosage: 30 UG;QW; IM
     Route: 030

REACTIONS (8)
  - ABDOMINAL PAIN UPPER [None]
  - BLADDER DISORDER [None]
  - DIARRHOEA [None]
  - MASS [None]
  - METASTASES TO BONE [None]
  - METASTASES TO SPINE [None]
  - PROSTATE CANCER METASTATIC [None]
  - WEIGHT INCREASED [None]
